FAERS Safety Report 5669816-8 (Version None)
Quarter: 2008Q1

REPORT INFORMATION
  Report Type: 
  Country: None (occurrence: None)
  Receive Date: 20080317
  Receipt Date: 20080305
  Transmission Date: 20080703
  Serious: Yes (Other)
  Sender: FDA-Public Use
  Company Number: PT-PFIZER INC-2007070543

PATIENT
  Sex: Female
  Weight: 75 kg

DRUGS (6)
  1. CHAMPIX [Suspect]
     Indication: SMOKING CESSATION THERAPY
     Route: 048
     Dates: start: 20070601, end: 20070801
  2. CHAMPIX [Suspect]
     Route: 048
     Dates: start: 20071031, end: 20071102
  3. CHAMPIX [Suspect]
     Route: 048
  4. FLUOXETINE [Concomitant]
     Route: 048
  5. CASTILIUM [Concomitant]
     Route: 048
  6. CONTRACEPTIVE, UNSPECIFIED [Concomitant]
     Route: 048

REACTIONS (11)
  - ALOPECIA [None]
  - APHTHOUS STOMATITIS [None]
  - ASTIGMATISM [None]
  - CELLULITIS [None]
  - CHRONIC SINUSITIS [None]
  - DRUG INEFFECTIVE [None]
  - HEADACHE [None]
  - MENORRHAGIA [None]
  - MYOPIA [None]
  - OPTIC NEUROPATHY [None]
  - WEIGHT INCREASED [None]
